FAERS Safety Report 10980690 (Version 5)
Quarter: 2015Q4

REPORT INFORMATION
  Report Type: Report from Study
  Country: FR (occurrence: FR)
  Receive Date: 20150402
  Receipt Date: 20151124
  Transmission Date: 20160304
  Serious: Yes (Hospitalization)
  Sender: FDA-Public Use
  Company Number: FR-EXELIXIS-XL18415005307

PATIENT
  Age: 73 Year
  Sex: Male
  Weight: 57 kg

DRUGS (8)
  1. STILNOX [Concomitant]
     Active Substance: ZOLPIDEM TARTRATE
  2. LANTUS [Concomitant]
     Active Substance: INSULIN GLARGINE
  3. LOXEN [Concomitant]
     Active Substance: NICARDIPINE HYDROCHLORIDE
  4. DOLIPRANE [Concomitant]
     Active Substance: ACETAMINOPHEN
  5. IXPRIM [Concomitant]
     Active Substance: ACETAMINOPHEN\TRAMADOL HYDROCHLORIDE
  6. DUROGESIC [Concomitant]
     Active Substance: FENTANYL
  7. XL184 [Suspect]
     Active Substance: CABOZANTINIB
     Indication: HEPATOCELLULAR CARCINOMA
     Dosage: 60 MG, QD
     Route: 048
     Dates: start: 20150323, end: 20150327
  8. XL184 [Suspect]
     Active Substance: CABOZANTINIB
     Dosage: 40 MG, QD
     Route: 048
     Dates: start: 20150410, end: 20150518

REACTIONS (1)
  - Hepatic encephalopathy [Recovered/Resolved]

NARRATIVE: CASE EVENT DATE: 20150327
